FAERS Safety Report 25619763 (Version 2)
Quarter: 2025Q3

REPORT INFORMATION
  Report Type: Report from Study
  Country: CA (occurrence: CA)
  Receive Date: 20250729
  Receipt Date: 20250901
  Transmission Date: 20251021
  Serious: Yes (Other)
  Sender: Haleon PLC
  Company Number: CA-002147023-NVSC2024CA072647

PATIENT
  Age: 36 Year
  Sex: Female

DRUGS (1)
  1. DICLOFENAC [Suspect]
     Active Substance: DICLOFENAC
     Indication: Product used for unknown indication
     Route: 065
     Dates: start: 20240227, end: 20240227

REACTIONS (6)
  - Ankylosing spondylitis [Unknown]
  - Discomfort [Unknown]
  - Fatigue [Unknown]
  - Dizziness [Unknown]
  - Joint swelling [Unknown]
  - Musculoskeletal stiffness [Unknown]
